FAERS Safety Report 8455753-2 (Version None)
Quarter: 2012Q2

REPORT INFORMATION
  Report Type: 
  Country: None (occurrence: None)
  Receive Date: 20120621
  Receipt Date: 20120619
  Transmission Date: 20120825
  Serious: No
  Sender: FDA-Public Use
  Company Number: US-TEVA-344041USA

PATIENT
  Sex: Male

DRUGS (7)
  1. CLONAZEPAM [Concomitant]
  2. PROAIR HFA [Suspect]
     Indication: CHRONIC OBSTRUCTIVE PULMONARY DISEASE
     Dosage: PRN
     Route: 055
     Dates: start: 20030101
  3. SIMVASTATIN [Concomitant]
  4. PRIMIDONE [Concomitant]
     Indication: TREMOR
  5. BUSPIRONE HCL [Concomitant]
  6. LISINOPRIL [Concomitant]
     Indication: BLOOD PRESSURE MANAGEMENT
  7. TRAZODONE HCL [Concomitant]

REACTIONS (1)
  - BLOOD PRESSURE INCREASED [None]
